FAERS Safety Report 6122435-1 (Version None)
Quarter: 2009Q1

REPORT INFORMATION
  Report Type: 
  Country: None (occurrence: None)
  Receive Date: 20090316
  Receipt Date: 20090316
  Transmission Date: 20090719
  Serious: Yes (Other)
  Sender: FDA-Public Use
  Company Number: None

PATIENT
  Age: 78 Year
  Sex: Male
  Weight: 106.5953 kg

DRUGS (2)
  1. ADVAIR DISKUS 500/50 [Suspect]
     Indication: CHRONIC OBSTRUCTIVE PULMONARY DISEASE
     Dosage: FLUTICASONE PROPIONATE 500MG BID, 12313234345
     Dates: start: 20000101, end: 20090313
  2. BICARBONATE OF SODA AND WATER [Concomitant]

REACTIONS (2)
  - GLOSSODYNIA [None]
  - INCORRECT DOSE ADMINISTERED [None]
